FAERS Safety Report 4942296-3 (Version None)
Quarter: 2006Q1

REPORT INFORMATION
  Report Type: 
  Country: None (occurrence: None)
  Receive Date: 20060313
  Receipt Date: 20051115
  Transmission Date: 20060701
  Serious: No
  Sender: FDA-Public Use
  Company Number: US-GLAXOSMITHKLINE-A0582293A

PATIENT
  Age: 64 Year
  Sex: Female

DRUGS (1)
  1. AMERICAN FARE NICOTINE GUM 2MG, ORIGINAL [Suspect]
     Dates: start: 20051003, end: 20051112

REACTIONS (1)
  - CONDITION AGGRAVATED [None]
